FAERS Safety Report 16614078 (Version 2)
Quarter: 2019Q3

REPORT INFORMATION
  Report Type: Spontaneous
  Country: HR (occurrence: HR)
  Receive Date: 20190723
  Receipt Date: 20190806
  Transmission Date: 20191004
  Serious: Yes (Death, Hospitalization)
  Sender: FDA-Public Use
  Company Number: HR-TEVA-2019-HR-1081498

PATIENT
  Age: 65 Year
  Sex: Male
  Weight: 82 kg

DRUGS (10)
  1. CICLOSPORIN [Interacting]
     Active Substance: CYCLOSPORINE
     Dosage: CICLOSPORIN 60+0+60 MG
     Route: 048
  2. ERLOTINIB [Suspect]
     Active Substance: ERLOTINIB
     Indication: LUNG ADENOCARCINOMA
     Route: 048
  3. CICLOSPORIN [Interacting]
     Active Substance: CYCLOSPORINE
     Dosage: 140  DAILY;
     Route: 065
  4. PREDNISOLONE. [Suspect]
     Active Substance: PREDNISOLONE
     Indication: IMMUNOSUPPRESSANT DRUG THERAPY
     Dosage: HAD BEEN RECEIVING AT LOW DOSE
     Route: 065
  5. MYCOPHENOLATE MOFETIL. [Suspect]
     Active Substance: MYCOPHENOLATE MOFETIL
     Indication: IMMUNOSUPPRESSANT DRUG THERAPY
     Route: 048
  6. ERLOTINIB [Interacting]
     Active Substance: ERLOTINIB
     Indication: LYMPHANGIOSIS CARCINOMATOSA
  7. ERLOTINIB [Interacting]
     Active Substance: ERLOTINIB
     Indication: LUNG CARCINOMA CELL TYPE UNSPECIFIED STAGE IV
  8. CICLOSPORIN [Interacting]
     Active Substance: CYCLOSPORINE
     Indication: IMMUNOSUPPRESSANT DRUG THERAPY
     Dosage: 140 MILLIGRAM DAILY;
     Route: 065
  9. MYCOPHENOLATE MOFETIL. [Suspect]
     Active Substance: MYCOPHENOLATE MOFETIL
     Indication: HEART TRANSPLANT
  10. CICLOSPORIN [Interacting]
     Active Substance: CYCLOSPORINE
     Indication: HEART TRANSPLANT
     Dosage: THE DOSE OF CICLOSPORIN WAS REDUCED TO 40 MG IN THE MORNING AND 30 MG IN THE EVENING
     Route: 065

REACTIONS (7)
  - Malignant neoplasm progression [Unknown]
  - Lung adenocarcinoma [Fatal]
  - Diarrhoea [Recovered/Resolved]
  - Drug level increased [Unknown]
  - Drug interaction [Unknown]
  - Skin disorder [Recovered/Resolved]
  - Pleural effusion [Unknown]
